FAERS Safety Report 5211559-9 (Version None)
Quarter: 2007Q1

REPORT INFORMATION
  Report Type: 
  Country: None (occurrence: None)
  Receive Date: 20070116
  Receipt Date: 20070116
  Transmission Date: 20070707
  Serious: Yes (Other)
  Sender: FDA-Public Use
  Company Number: None

PATIENT
  Sex: Male
  Weight: 151.5014 kg

DRUGS (2)
  1. VICODIN [Suspect]
     Indication: NEPHROLITHIASIS
     Dosage: 5 MG Q6 HOURS
     Dates: start: 20061217
  2. VICODIN [Suspect]
     Indication: PAIN
     Dosage: 5 MG Q6 HOURS
     Dates: start: 20061217

REACTIONS (1)
  - NAUSEA [None]
